FAERS Safety Report 7985265-1 (Version None)
Quarter: 2011Q4

REPORT INFORMATION
  Report Type: 
  Country: None (occurrence: None)
  Receive Date: 20111216
  Receipt Date: 20111209
  Transmission Date: 20120403
  Serious: Yes (Other)
  Sender: FDA-Public Use
  Company Number: JP-JNJFOC-20100900456

PATIENT
  Sex: Female
  Weight: 40 kg

DRUGS (12)
  1. RABEPRAZOLE SODIUM [Concomitant]
     Indication: PROPHYLAXIS
     Route: 048
  2. FENTANYL-100 [Suspect]
     Route: 062
     Dates: start: 20100707, end: 20100730
  3. MUCOSTA [Concomitant]
     Indication: PROPHYLAXIS
     Route: 048
  4. ASPIRIN [Concomitant]
     Indication: PROPHYLAXIS
     Route: 048
  5. NOVAMIN [Concomitant]
     Route: 048
     Dates: start: 20100705, end: 20100802
  6. FENTANYL-100 [Suspect]
     Indication: PAIN
     Route: 062
     Dates: start: 20100701, end: 20100707
  7. MAGNESIUM SULFATE [Concomitant]
     Indication: PROPHYLAXIS
     Route: 048
  8. HOCHU-EKKI-TO [Concomitant]
     Indication: PROPHYLAXIS
     Route: 048
  9. ARICEPT [Concomitant]
     Indication: PROPHYLAXIS
     Route: 048
  10. NOVAMIN [Concomitant]
     Indication: NAUSEA
     Route: 030
     Dates: start: 20100705, end: 20100705
  11. NOVAMIN [Concomitant]
     Indication: VOMITING
     Route: 030
     Dates: start: 20100705, end: 20100705
  12. NOVAMIN [Concomitant]
     Route: 048
     Dates: start: 20100705, end: 20100802

REACTIONS (10)
  - VOMITING [None]
  - PYREXIA [None]
  - DRUG PRESCRIBING ERROR [None]
  - INCONTINENCE [None]
  - MEMORY IMPAIRMENT [None]
  - MALAISE [None]
  - INCORRECT DOSE ADMINISTERED [None]
  - DISORIENTATION [None]
  - SOMNOLENCE [None]
  - NAUSEA [None]
